FAERS Safety Report 9910739 (Version 1)
Quarter: 2014Q1

REPORT INFORMATION
  Report Type: Spontaneous
  Country: TR (occurrence: TR)
  Receive Date: 20140219
  Receipt Date: 20140219
  Transmission Date: 20141002
  Serious: Yes (Hospitalization)
  Sender: FDA-Public Use
  Company Number: TR-BAYER-2014-020617

PATIENT
  Age: 34 Year
  Sex: Female

DRUGS (3)
  1. PARACETAMOL+PHENYLEPHRINE+CHLORPHENAMINE [Suspect]
     Indication: UPPER RESPIRATORY TRACT INFECTION
     Dosage: 650 MG/10 MG/4 MG PER TABLET BID
     Route: 048
     Dates: start: 2013
  2. CLARITHROMYCIN [Interacting]
     Indication: UPPER RESPIRATORY TRACT INFECTION
     Dosage: 500 MG PER TABLET
     Route: 048
     Dates: start: 2013
  3. BUTAMIRATE CITRATE [Concomitant]
     Indication: UPPER RESPIRATORY TRACT INFECTION
     Dosage: 50 MG PER TABLET
     Route: 048
     Dates: start: 2013

REACTIONS (2)
  - Psychotic disorder [Recovered/Resolved]
  - Drug interaction [None]
